FAERS Safety Report 5386098-5 (Version None)
Quarter: 2007Q3

REPORT INFORMATION
  Report Type: 
  Country: None (occurrence: None)
  Receive Date: 20070710
  Receipt Date: 20070625
  Transmission Date: 20080115
  Serious: Yes (Hospitalization)
  Sender: FDA-Public Use
  Company Number: B0476750A

PATIENT
  Age: 28 Year
  Sex: Female

DRUGS (12)
  1. VENTOLIN [Suspect]
     Indication: ASTHMA
     Dosage: 5 MG/ INHALED
     Route: 055
  2. ALBUTEROL SPIROS [Concomitant]
  3. TERBUTALINE SULFATE [Concomitant]
  4. FLUTICASONE PROPIONATE [Concomitant]
  5. FORMOTEROL FUMARATE [Concomitant]
  6. PREDNISOLONE [Concomitant]
  7. VERAPAMIL [Concomitant]
  8. OXYGEN [Concomitant]
  9. MAGNESIUM SULFATE [Concomitant]
  10. SODIUM CHLORIDE [Concomitant]
  11. AMINOPHYLLINE [Concomitant]
  12. HYDROCORTISONE [Concomitant]

REACTIONS (4)
  - ABDOMINAL PAIN [None]
  - ASTHMA [None]
  - BASE EXCESS [None]
  - HYPERLACTACIDAEMIA [None]
